FAERS Safety Report 9430280 (Version 2)
Quarter: 2013Q3

REPORT INFORMATION
  Report Type: Spontaneous
  Country: FR (occurrence: FR)
  Receive Date: 20130730
  Receipt Date: 20130812
  Transmission Date: 20140515
  Serious: Yes (Other)
  Sender: FDA-Public Use
  Company Number: FR-TEVA-421762ISR

PATIENT
  Age: 48 Year
  Sex: Female

DRUGS (8)
  1. PANTOPRAZOLE 20 MG [Suspect]
     Indication: GASTRIC ULCER
     Dosage: 1 DOSAGE FORMS DAILY; STARTED SEVERAL YEARS AGO
     Route: 048
  2. OROCAL D3, TABLET [Suspect]
     Indication: HYPOVITAMINOSIS
     Dosage: 2 DOSAGE FORMS DAILY;
     Route: 048
  3. PARACETAMOL [Suspect]
     Indication: PAIN
     Route: 048
     Dates: start: 20120330
  4. ROACTEMRA [Suspect]
     Indication: ANKYLOSING SPONDYLITIS
     Dosage: STARTED SEVERAL YEARS AGO
     Route: 042
     Dates: end: 20120914
  5. CORTANCYL [Suspect]
     Dosage: 2 MILLIGRAM DAILY;
     Route: 048
     Dates: start: 20120820
  6. KALEORID LP 600 MG, TABLET [Suspect]
     Indication: HYPOKALAEMIA
     Dosage: 2 DOSAGE FORMS DAILY; STARTED SEVERAL YEARS AGO
     Route: 048
  7. PROTELOS [Suspect]
     Indication: OSTEOPOROSIS
     Dosage: 2 GRAM DAILY;
     Route: 048
  8. CODEINE [Suspect]
     Indication: PAIN
     Route: 048
     Dates: start: 20120330

REACTIONS (1)
  - Lung disorder [Recovered/Resolved]
